FAERS Safety Report 5176501-8 (Version None)
Quarter: 2006Q4

REPORT INFORMATION
  Report Type: 
  Country: None (occurrence: None)
  Receive Date: 20061207
  Receipt Date: 20061128
  Transmission Date: 20070319
  Serious: Yes (Hospitalization)
  Sender: FDA-Public Use
  Company Number: 230012M06ESP

PATIENT
  Age: 47 Year
  Sex: Female

DRUGS (1)
  1. REBIF [Suspect]
     Indication: MULTIPLE SCLEROSIS
     Dosage: 22 MCG, 3 IN 1 WEEKS, SUBCUTANEOUS
     Route: 057
     Dates: start: 20030101, end: 20061120

REACTIONS (8)
  - CARDIOMEGALY [None]
  - DYSURIA [None]
  - LIVER DISORDER [None]
  - MYOCARDIAL ISCHAEMIA [None]
  - NEPHROTIC SYNDROME [None]
  - PNEUMONIA [None]
  - RENAL FAILURE [None]
  - TRANSAMINASES INCREASED [None]
